FAERS Safety Report 14322395 (Version 1)
Quarter: 2017Q4

REPORT INFORMATION
  Report Type: Spontaneous
  Country: US (occurrence: US)
  Receive Date: 20171225
  Receipt Date: 20171225
  Transmission Date: 20180321
  Serious: Yes (Hospitalization)
  Sender: FDA-Public Use
  Company Number: US-TEVA-2017-US-839473

PATIENT
  Sex: Female

DRUGS (4)
  1. IBUPROFEN. [Concomitant]
     Active Substance: IBUPROFEN
     Indication: BACK PAIN
  2. GABAPENTIN. [Suspect]
     Active Substance: GABAPENTIN
     Indication: BACK PAIN
     Dosage: 2 DOSAGE FORMS DAILY;
  3. SUCRALFATE. [Concomitant]
     Active Substance: SUCRALFATE
     Indication: PROPHYLAXIS
  4. GABAPENTIN. [Suspect]
     Active Substance: GABAPENTIN
     Dosage: 4 DOSAGE FORMS DAILY;

REACTIONS (3)
  - Gait disturbance [Unknown]
  - Feeling abnormal [Unknown]
  - Vertigo [Recovering/Resolving]
